FAERS Safety Report 5922577-7 (Version None)
Quarter: 2008Q4

REPORT INFORMATION
  Report Type: 
  Country: None (occurrence: None)
  Receive Date: 20081017
  Receipt Date: 20081007
  Transmission Date: 20090506
  Serious: Yes (Hospitalization)
  Sender: FDA-Public Use
  Company Number: FR-ROCHE-590205

PATIENT
  Sex: Male
  Weight: 55 kg

DRUGS (7)
  1. CAPECITABINE [Suspect]
     Dosage: TEMPORARILY INTERRUPTED.
     Route: 048
     Dates: start: 20080916, end: 20081007
  2. BLINDED BEVACIZUMAB [Suspect]
     Dosage: DOSE FORM: INFUSION DRUG TEMPORARILY INTERRUPTED.
     Route: 042
     Dates: start: 20080916, end: 20081007
  3. CISPLATIN [Suspect]
     Dosage: DOSE FORM: INFUSION DRUG TEMPORARILY INTERRUPTED
     Route: 042
     Dates: start: 20080916, end: 20081007
  4. RILMENIDINE [Concomitant]
  5. FENOFIBRATE [Concomitant]
  6. ALLOPURINOL [Concomitant]
     Dates: start: 20081003
  7. LENOGRASTIM [Concomitant]
     Dates: start: 20081003, end: 20081006

REACTIONS (1)
  - GENERAL PHYSICAL HEALTH DETERIORATION [None]
